FAERS Safety Report 26145329 (Version 1)
Quarter: 2025Q4

REPORT INFORMATION
  Report Type: Spontaneous
  Country: EU (occurrence: EU)
  Receive Date: 20251211
  Receipt Date: 20251211
  Transmission Date: 20260117
  Serious: Yes (Other)
  Sender: BOEHRINGER INGELHEIM
  Company Number: EU-BoehringerIngelheim-2025-BI-112544

PATIENT
  Age: 60 Year
  Sex: Female

DRUGS (1)
  1. ZONGERTINIB [Suspect]
     Active Substance: ZONGERTINIB
     Indication: HER2 mutant non-small cell lung cancer

REACTIONS (3)
  - Metastases to spine [Unknown]
  - Metastases to spine [Unknown]
  - Malignant neoplasm progression [Unknown]

NARRATIVE: CASE EVENT DATE: 20240901
